FAERS Safety Report 7286365-4 (Version None)
Quarter: 2011Q1

REPORT INFORMATION
  Report Type: 
  Country: None (occurrence: None)
  Receive Date: 20110210
  Receipt Date: 20110208
  Transmission Date: 20110831
  Serious: Yes (Death)
  Sender: FDA-Public Use
  Company Number: CA-B.I. PHARMACEUTICALS,INC./RIDGEFIELD-2010-BP-13861BP

PATIENT
  Sex: Female
  Weight: 73 kg

DRUGS (12)
  1. AVALIDE [Concomitant]
     Indication: HYPERTENSION
     Route: 048
  2. TEVA-LISINOPRIL [Concomitant]
     Indication: HYPERTENSION
     Dosage: 20 MG
     Route: 048
  3. SYNTHROID [Concomitant]
     Indication: HYPOTHYROIDISM
     Dosage: 0.02 MCG
     Route: 048
  4. LIPITOR [Concomitant]
     Indication: BLOOD CHOLESTEROL
     Dosage: 10 MG
     Route: 048
  5. RAN-PANTOPRAZOLE [Concomitant]
     Indication: GASTRITIS PROPHYLAXIS
     Dosage: 40 MG
     Route: 048
  6. DABIGATRAN [Suspect]
     Indication: CEREBROVASCULAR ACCIDENT PROPHYLAXIS
     Route: 048
     Dates: start: 20100816, end: 20101202
  7. DABIGATRAN [Suspect]
     Indication: ATRIAL FIBRILLATION
  8. CARBOCAL D [Concomitant]
     Indication: OSTEOPOROSIS
     Dosage: 500 MG
     Route: 048
  9. ASAPHEN [Concomitant]
     Indication: ANTIPLATELET THERAPY
     Dosage: 80 MG
     Route: 048
  10. BISOPROLOL [Concomitant]
     Indication: CARDIOVASCULAR DISORDER
     Dosage: 2.5 MG
     Route: 048
  11. BISOPROLOL [Concomitant]
     Indication: ATRIAL FIBRILLATION
  12. APO-AMLODIPINE [Concomitant]
     Indication: HYPERTENSION
     Dosage: 5 MG
     Route: 048

REACTIONS (1)
  - ISCHAEMIC STROKE [None]
